FAERS Safety Report 6699917-7 (Version None)
Quarter: 2010Q2

REPORT INFORMATION
  Report Type: 
  Country: None (occurrence: None)
  Receive Date: 20100428
  Receipt Date: 20100414
  Transmission Date: 20101027
  Serious: Yes (Hospitalization)
  Sender: FDA-Public Use
  Company Number: GB-RANBAXY-2010RR-33283

PATIENT
  Age: 57 Year
  Sex: Female
  Weight: 87.2 kg

DRUGS (10)
  1. CLARITHROMYCIN [Suspect]
     Dosage: UNK
     Route: 065
     Dates: end: 20091209
  2. TRABECTEDIN [Suspect]
     Dosage: 1.2 MG/M2, UNK
     Route: 042
     Dates: start: 20091001
  3. TRABECTEDIN [Suspect]
     Dosage: 1.2 MG/M2, UNK
     Route: 042
     Dates: start: 20091202
  4. ASPIRIN [Concomitant]
     Dosage: 20 MG, UNK
     Route: 048
  5. CLARITHROMYCIN [Concomitant]
     Indication: HYPERTENSION
     Dosage: 50 MG, UNK
     Route: 048
  6. CYCLIZINE [Concomitant]
     Dosage: 75 MG, UNK
     Route: 048
  7. CYCLIZINE [Concomitant]
     Route: 065
  8. DEXAMETHASONE [Concomitant]
     Dosage: 2 MG, UNK
     Route: 065
  9. OMEPRAZOLE [Concomitant]
     Route: 065
  10. TRAMADOL HCL [Concomitant]
     Dosage: 20 MG, UNK
     Route: 042

REACTIONS (5)
  - ALANINE AMINOTRANSFERASE INCREASED [None]
  - BLOOD CREATINE PHOSPHOKINASE INCREASED [None]
  - BLOOD CREATININE INCREASED [None]
  - DRUG INTERACTION [None]
  - MYALGIA [None]
